FAERS Safety Report 19233360 (Version 3)
Quarter: 2021Q2

REPORT INFORMATION
  Report Type: Spontaneous
  Country: TR (occurrence: TR)
  Receive Date: 20210507
  Receipt Date: 20210525
  Transmission Date: 20210717
  Serious: Yes (Other)
  Sender: FDA-Public Use
  Company Number: TR-TAKEDA-2021TUS029058

PATIENT
  Age: 47 Year
  Sex: Male

DRUGS (4)
  1. TRILEPTAL [Concomitant]
     Active Substance: OXCARBAZEPINE
     Indication: EPILEPSY
     Dosage: UNK
     Route: 065
  2. CYCLOPHOSPHAMIDE. [Suspect]
     Active Substance: CYCLOPHOSPHAMIDE
     Indication: NEOPLASM
     Dosage: 300 MILLIGRAM/SQ. METER
     Route: 065
     Dates: start: 20180605
  3. VELCADE [Suspect]
     Active Substance: BORTEZOMIB
     Indication: NEOPLASM
     Dosage: 1.3 MILLIGRAM/SQ. METER
     Route: 065
     Dates: start: 20180605
  4. DEXAMETHASONE. [Suspect]
     Active Substance: DEXAMETHASONE
     Indication: NEOPLASM
     Dosage: 40 MILLIGRAM
     Route: 065
     Dates: start: 20180605

REACTIONS (1)
  - Therapeutic product effect decreased [Unknown]
